FAERS Safety Report 20375518 (Version 9)
Quarter: 2023Q4

REPORT INFORMATION
  Report Type: Spontaneous
  Country: US (occurrence: US)
  Receive Date: 20220125
  Receipt Date: 20231106
  Transmission Date: 20240110
  Serious: No
  Sender: FDA-Public Use
  Company Number: US-PFIZER INC-202101140597

PATIENT
  Age: 68 Year
  Sex: Female
  Weight: 45.36 kg

DRUGS (2)
  1. XELJANZ XR [Suspect]
     Active Substance: TOFACITINIB CITRATE
     Indication: Rheumatoid arthritis
     Dosage: 11 MG, 1X/DAY
  2. METOPROLOL [Concomitant]
     Active Substance: METOPROLOL
     Dosage: UNK

REACTIONS (10)
  - Drug hypersensitivity [Recovering/Resolving]
  - Cough [Not Recovered/Not Resolved]
  - Stress [Unknown]
  - Malaise [Unknown]
  - Pain [Unknown]
  - Illness [Unknown]
  - Neck pain [Unknown]
  - Headache [Unknown]
  - Asthenia [Unknown]
  - Poor quality sleep [Unknown]
